FAERS Safety Report 6741058-4 (Version None)
Quarter: 2010Q2

REPORT INFORMATION
  Report Type: 
  Country: None (occurrence: None)
  Receive Date: 20100526
  Receipt Date: 20100521
  Transmission Date: 20101027
  Serious: Yes (Other)
  Sender: FDA-Public Use
  Company Number: US-JNJFOC-20100206031

PATIENT
  Age: 49 Year
  Sex: Female

DRUGS (11)
  1. LEVOFLOXACIN [Suspect]
     Indication: DRUG USE FOR UNKNOWN INDICATION
     Route: 048
  2. AMLODIPINE BESYLATE [Suspect]
     Indication: DRUG USE FOR UNKNOWN INDICATION
     Route: 065
  3. METOPROLOL TARTRATE [Suspect]
     Indication: DRUG USE FOR UNKNOWN INDICATION
     Route: 048
  4. CORTICOSTEROID NOS [Suspect]
     Indication: DRUG USE FOR UNKNOWN INDICATION
     Route: 065
  5. FERROUS SULFATE TAB [Concomitant]
     Route: 065
  6. OMEPRAZOLE [Concomitant]
     Route: 065
  7. METHADONE [Concomitant]
     Route: 065
  8. CITALOPRAM HYDROBROMIDE [Concomitant]
     Route: 065
  9. ASCORBIC ACID [Concomitant]
     Route: 065
  10. MULTI-VITAMINS [Concomitant]
     Route: 065
  11. IBUPROFEN [Concomitant]
     Route: 065

REACTIONS (5)
  - ARTHRALGIA [None]
  - DYSPNOEA [None]
  - LUNG INFILTRATION [None]
  - OEDEMA PERIPHERAL [None]
  - TENDON RUPTURE [None]
